FAERS Safety Report 16111875 (Version 2)
Quarter: 2019Q2

REPORT INFORMATION
  Report Type: Spontaneous
  Country: US (occurrence: US)
  Receive Date: 20190325
  Receipt Date: 20190422
  Transmission Date: 20190711
  Serious: No
  Sender: FDA-Public Use
  Company Number: US-SA-2019SA079324

PATIENT
  Age: 90 Year
  Sex: Male
  Weight: 92 kg

DRUGS (1)
  1. LANTUS [Suspect]
     Active Substance: INSULIN GLARGINE
     Dosage: 12 U, UNK
     Route: 065
     Dates: start: 20190313

REACTIONS (2)
  - Pruritus generalised [Recovered/Resolved]
  - Skin reaction [Recovered/Resolved]
